FAERS Safety Report 10264884 (Version 3)
Quarter: 2014Q3

REPORT INFORMATION
  Report Type: Spontaneous
  Country: PT (occurrence: PT)
  Receive Date: 20140627
  Receipt Date: 20140729
  Transmission Date: 20150326
  Serious: Yes (Life-Threatening, Hospitalization, Disabling)
  Sender: FDA-Public Use
  Company Number: PT-JNJFOC-20140613846

PATIENT
  Age: 61 Year
  Sex: Male
  Weight: 80 kg

DRUGS (11)
  1. CARVEDILOL. [Concomitant]
     Active Substance: CARVEDILOL
     Indication: CORONARY ARTERY DISEASE
     Route: 048
     Dates: start: 20140504, end: 20140506
  2. ESOMEPRAZOLE [Concomitant]
     Active Substance: ESOMEPRAZOLE
     Indication: PROPHYLAXIS
     Route: 065
     Dates: start: 20140502, end: 20140519
  3. SODIUM CHLORIDE. [Concomitant]
     Active Substance: SODIUM CHLORIDE
     Route: 065
     Dates: start: 20140502, end: 20140504
  4. REOPRO [Suspect]
     Active Substance: ABCIXIMAB
     Indication: ARTERIAL CATHETERISATION
     Dosage: 20 MG + 19 MG EM PERFUS
     Route: 042
     Dates: start: 20140502, end: 20140503
  5. SALICYLIC ACID [Interacting]
     Active Substance: SALICYLIC ACID
     Indication: ACUTE MYOCARDIAL INFARCTION
     Route: 048
  6. TICAGRELOR [Interacting]
     Active Substance: TICAGRELOR
     Indication: ACUTE MYOCARDIAL INFARCTION
     Dosage: DOESE:90??DOSE: 100
     Route: 048
     Dates: start: 20140502, end: 20140505
  7. HEPARIN SODIUM. [Interacting]
     Active Substance: HEPARIN SODIUM
     Indication: ARTERIAL CATHETERISATION
     Dosage: DOESE:90??DOSE: 100
     Route: 013
     Dates: start: 20140502, end: 20140502
  8. SALICYLIC ACID [Interacting]
     Active Substance: SALICYLIC ACID
     Indication: ACUTE MYOCARDIAL INFARCTION
     Dosage: DOESE:90??DOSE: 100
     Route: 048
     Dates: start: 20140502, end: 20140505
  9. CEFAZOLIN [Concomitant]
     Active Substance: CEFAZOLIN
     Indication: URINARY TRACT INFECTION
     Route: 042
     Dates: start: 20140505, end: 20140507
  10. REOPRO [Suspect]
     Active Substance: ABCIXIMAB
     Indication: ACUTE MYOCARDIAL INFARCTION
     Dosage: 20 MG + 19 MG EM PERFUS
     Route: 042
     Dates: start: 20140502, end: 20140503
  11. ATORVASTATIN [Concomitant]
     Active Substance: ATORVASTATIN
     Indication: DYSLIPIDAEMIA
     Route: 065
     Dates: start: 20140502, end: 20140519

REACTIONS (6)
  - Brain herniation [Recovered/Resolved with Sequelae]
  - Fatigue [Recovered/Resolved]
  - Cerebral haematoma [Recovered/Resolved with Sequelae]
  - Drug interaction [Unknown]
  - Haemorrhage intracranial [Recovered/Resolved with Sequelae]
  - Headache [Recovered/Resolved]

NARRATIVE: CASE EVENT DATE: 20140504
